FAERS Safety Report 5801290-0 (Version None)
Quarter: 2008Q3

REPORT INFORMATION
  Report Type: 
  Country: None (occurrence: None)
  Receive Date: 20080703
  Receipt Date: 20080703
  Transmission Date: 20090109
  Serious: Yes (Life-Threatening, Hospitalization, Other)
  Sender: FDA-Public Use
  Company Number: None

PATIENT
  Sex: Male
  Weight: 78.4723 kg

DRUGS (1)
  1. HUMIRA [Suspect]
     Indication: RHEUMATOID ARTHRITIS
     Dosage: 40 MG EVERY 2 WEEKS SHOT
     Dates: end: 20071217

REACTIONS (3)
  - ARTHRITIS INFECTIVE [None]
  - DIALYSIS [None]
  - RENAL FAILURE [None]
